FAERS Safety Report 8551764-7 (Version None)
Quarter: 2012Q3

REPORT INFORMATION
  Report Type: 
  Country: None (occurrence: None)
  Receive Date: 20120730
  Receipt Date: 20120724
  Transmission Date: 20120928
  Serious: Yes (Other)
  Sender: FDA-Public Use
  Company Number: US-PFIZER INC-2012179847

PATIENT
  Sex: Male

DRUGS (6)
  1. PULMICORT FLEXHALER [Suspect]
     Indication: ASTHMA
     Dosage: UNK, 2 PUFFS TWO TIMES A DAY
  2. INTAL [Suspect]
     Indication: ASTHMA
     Dosage: UNK,  2 PUFFS TWO TIMES A DAY
     Dates: end: 20100101
  3. PREDNISONE TAB [Suspect]
     Dosage: 10 MG EACH, AS NEEDED
  4. DEXILANT [Concomitant]
     Indication: GASTROOESOPHAGEAL REFLUX DISEASE
     Dosage: 60 MG, 2X/DAY
  5. PREDNISONE TAB [Suspect]
     Indication: ASTHMA
     Dosage: 60 MG, AS NEEDED
  6. RHINOCORT [Suspect]
     Indication: ASTHMA
     Dosage: UNK, 2 PUFFS TWO TIMES A DAY
     Route: 045

REACTIONS (3)
  - ASTHMA [None]
  - NASOPHARYNGITIS [None]
  - OSTEOPENIA [None]
